FAERS Safety Report 8479851-2 (Version None)
Quarter: 2012Q2

REPORT INFORMATION
  Report Type: 
  Country: None (occurrence: None)
  Receive Date: 20120629
  Receipt Date: 20120627
  Transmission Date: 20120825
  Serious: Yes (Death, Other)
  Sender: FDA-Public Use
  Company Number: US-ROXANE LABORATORIES, INC.-2012-RO-01488RO

PATIENT
  Age: 67 Year
  Sex: Female

DRUGS (2)
  1. MIDAZOLAM [Suspect]
     Indication: STATUS EPILEPTICUS
  2. PROPOFOL [Suspect]
     Indication: STATUS EPILEPTICUS

REACTIONS (7)
  - PNEUMONIA [None]
  - ELECTROCARDIOGRAM ST SEGMENT [None]
  - THROMBOCYTOPENIA [None]
  - DEATH [None]
  - HYPOXIC-ISCHAEMIC ENCEPHALOPATHY [None]
  - HYPOTHERMIA [None]
  - HAEMORRHAGE [None]
